FAERS Safety Report 10957604 (Version 1)
Quarter: 2015Q1

REPORT INFORMATION
  Report Type: Report from Study
  Country: TW (occurrence: TW)
  Receive Date: 20150326
  Receipt Date: 20150326
  Transmission Date: 20150721
  Serious: Yes (Other)
  Sender: FDA-Public Use
  Company Number: TW-009507513-1503TWN010735

PATIENT

DRUGS (3)
  1. RIBAVIRIN. [Suspect]
     Active Substance: RIBAVIRIN
     Indication: HEPATITIS C
     Dosage: DOSE,FREQUENCY AND STRENGTH WERE NOT REPORTED
     Route: 048
  2. PEGINTERFERON ALFA-2B [Suspect]
     Active Substance: PEGINTERFERON ALFA-2B
     Indication: HEPATITIS C
     Dosage: DOSE,FREQUENCY,STRENGTH AND ROUTE OF ADMINISTRATION WERE NOT REPORTED
  3. BOCEPREVIR [Suspect]
     Active Substance: BOCEPREVIR
     Indication: HEPATITIS C
     Dosage: DOSE,FREQUENCY,STRENGTH AND ROUTE OF ADMINISTRATION WERE NOT REPORTED

REACTIONS (1)
  - Adverse event [Unknown]
